FAERS Safety Report 12493755 (Version 1)
Quarter: 2016Q2

REPORT INFORMATION
  Report Type: Report from Study
  Country: CZ (occurrence: CZ)
  Receive Date: 20160623
  Receipt Date: 20160623
  Transmission Date: 20160815
  Serious: Yes (Hospitalization)
  Sender: FDA-Public Use
  Company Number: CZ-JNJFOC-20160322295

PATIENT
  Age: 80 Year
  Sex: Female
  Weight: 73 kg

DRUGS (20)
  1. RIVAROXABAN [Suspect]
     Active Substance: RIVAROXABAN
     Indication: ATRIAL FIBRILLATION
     Route: 048
     Dates: start: 20150614, end: 20160310
  2. DIGOXINUM [Concomitant]
     Indication: CARDIAC FAILURE
     Route: 065
     Dates: start: 20150623
  3. ALPRAZOLAMUM [Concomitant]
     Indication: ANXIOLYTIC THERAPY
     Route: 065
     Dates: start: 20150810
  4. ALLOPURINOLUM [Concomitant]
     Indication: HYPERURICAEMIA
     Route: 065
     Dates: start: 20150810
  5. ATORVASTATIN [Concomitant]
     Active Substance: ATORVASTATIN
     Route: 065
     Dates: start: 2013
  6. METOPROLOL. [Concomitant]
     Active Substance: METOPROLOL
     Indication: HYPERTENSION
     Route: 065
     Dates: start: 2013
  7. FUROSEMIDE. [Concomitant]
     Active Substance: FUROSEMIDE
     Indication: CARDIAC FAILURE
     Route: 065
     Dates: start: 2013
  8. BETAHISTINE DIHYDROCHLORIDE [Concomitant]
     Active Substance: BETAHISTINE
     Indication: VASODILATION PROCEDURE
     Route: 065
     Dates: start: 20151016, end: 20160406
  9. RIVAROXABAN [Suspect]
     Active Substance: RIVAROXABAN
     Indication: CEREBROVASCULAR ACCIDENT PROPHYLAXIS
     Route: 048
     Dates: start: 20150614, end: 20160310
  10. LEVOTHYROXINUM [Concomitant]
     Indication: HYPOTHYROIDISM
     Route: 065
     Dates: start: 2013
  11. RILMENIDINE [Concomitant]
     Active Substance: RILMENIDINE
     Indication: HYPERTENSION
     Route: 065
     Dates: start: 2013, end: 20150623
  12. KALIUM CHLORATUM [Concomitant]
     Active Substance: POTASSIUM CHLORIDE
     Indication: HYPOKALAEMIA
     Route: 065
     Dates: start: 20150623, end: 20160310
  13. RILMENIDINE [Concomitant]
     Active Substance: RILMENIDINE
     Indication: HYPERTENSION
     Route: 065
     Dates: start: 20150624, end: 20160322
  14. CLOPIDOGREL [Concomitant]
     Active Substance: CLOPIDOGREL BISULFATE
     Indication: ANTIPLATELET THERAPY
     Route: 065
     Dates: start: 20150612, end: 20160614
  15. SPIRONOLACTONUM [Concomitant]
     Indication: HYPOKALAEMIA
     Route: 065
     Dates: start: 20160316
  16. PANTOPRAZOLUM [Concomitant]
     Indication: GASTRIC ULCER
     Route: 065
     Dates: start: 20160310
  17. RIVAROXABAN [Suspect]
     Active Substance: RIVAROXABAN
     Indication: CEREBROVASCULAR ACCIDENT PROPHYLAXIS
     Route: 048
     Dates: start: 20160323, end: 20160406
  18. RIVAROXABAN [Suspect]
     Active Substance: RIVAROXABAN
     Indication: ATRIAL FIBRILLATION
     Route: 048
     Dates: start: 20160323, end: 20160406
  19. RAMIPRILUM [Concomitant]
     Indication: HYPERTENSION
     Route: 065
     Dates: start: 2013
  20. SIMETICONUM [Concomitant]
     Indication: FLATULENCE
     Route: 065
     Dates: start: 20150623, end: 20160406

REACTIONS (2)
  - Gastric ulcer [Recovered/Resolved]
  - Gastric ulcer [Recovered/Resolved]

NARRATIVE: CASE EVENT DATE: 20160310
